FAERS Safety Report 7998676-5 (Version None)
Quarter: 2011Q4

REPORT INFORMATION
  Report Type: 
  Country: None (occurrence: None)
  Receive Date: 20111221
  Receipt Date: 20111215
  Transmission Date: 20120403
  Serious: Yes (Hospitalization)
  Sender: FDA-Public Use
  Company Number: PHHY2011DE92844

PATIENT
  Age: 54 Year
  Sex: Female

DRUGS (2)
  1. ACETYLSALICYLIC ACID SRT [Suspect]
     Indication: HEADACHE
     Route: 048
     Dates: start: 20111012, end: 20111012
  2. FENISTIL [Suspect]
     Dosage: UNK
     Dates: end: 20111012

REACTIONS (2)
  - LOSS OF CONSCIOUSNESS [None]
  - HYPOAESTHESIA ORAL [None]
